FAERS Safety Report 8809151 (Version 1)
Quarter: 2012Q4

REPORT INFORMATION
  Report Type: Spontaneous
  Country: US (occurrence: None)
  Receive Date: 20120921
  Receipt Date: 20120921
  Transmission Date: 20130627
  Serious: Yes (Other)
  Sender: FDA-Public Use
  Company Number: None

PATIENT
  Age: 50 Year
  Sex: Female
  Weight: 72.4 kg

DRUGS (1)
  1. ICY/HOT [Suspect]
     Indication: PAIN
     Dosage: 1 patch Q8hrs PRN- top
     Route: 061
     Dates: start: 20120906, end: 20120918

REACTIONS (2)
  - Application site burn [None]
  - Burns second degree [None]
